FAERS Safety Report 9008681 (Version 2)
Quarter: 2013Q1

REPORT INFORMATION
  Report Type: Spontaneous
  Country: US (occurrence: US)
  Receive Date: 20130111
  Receipt Date: 20130328
  Transmission Date: 20140127
  Serious: Yes (Disabling, Other)
  Sender: FDA-Public Use
  Company Number: US-PFIZER INC-2013011159

PATIENT
  Age: 46 Year
  Sex: Female

DRUGS (6)
  1. CHANTIX [Suspect]
     Indication: SMOKING CESSATION THERAPY
     Dosage: STARTING PACK
     Dates: start: 200709, end: 200712
  2. PROAIR [Concomitant]
     Indication: BRONCHITIS CHRONIC
     Dosage: UNK
     Dates: start: 200205
  3. ADVIL [Concomitant]
     Indication: NECK PAIN
     Dosage: UNK
     Dates: start: 200205, end: 200804
  4. ADVIL [Concomitant]
     Indication: BACK PAIN
  5. ADVIL [Concomitant]
     Indication: ARTHRALGIA
  6. SUDAFED [Concomitant]
     Indication: SINUSITIS
     Dosage: UNK

REACTIONS (14)
  - Mental disorder [Unknown]
  - Suicidal ideation [Recovered/Resolved]
  - Major depression [Not Recovered/Not Resolved]
  - Cognitive disorder [Not Recovered/Not Resolved]
  - Anxiety [Not Recovered/Not Resolved]
  - Insomnia [Not Recovered/Not Resolved]
  - Fatigue [Not Recovered/Not Resolved]
  - Amnesia [Not Recovered/Not Resolved]
  - Mental disorder [Unknown]
  - Aggression [Recovered/Resolved]
  - Nightmare [Not Recovered/Not Resolved]
  - Psychomotor retardation [Not Recovered/Not Resolved]
  - Dissociative fugue [Unknown]
  - Affect lability [Not Recovered/Not Resolved]
